FAERS Safety Report 20011395 (Version 1)
Quarter: 2021Q4

REPORT INFORMATION
  Report Type: Report from Study
  Country: EE (occurrence: EE)
  Receive Date: 20211028
  Receipt Date: 20211028
  Transmission Date: 20220303
  Serious: Yes (Hospitalization)
  Sender: FDA-Public Use
  Company Number: EE-PRINSTON PHARMACEUTICAL INC.-2021PRN00370

PATIENT
  Age: 33 Year
  Sex: Male

DRUGS (5)
  1. IRBESARTAN [Suspect]
     Active Substance: IRBESARTAN
     Indication: Nephropathy
     Dosage: 150 MG, 1X/DAY
     Route: 048
     Dates: start: 20210507, end: 20210520
  2. IRBESARTAN [Suspect]
     Active Substance: IRBESARTAN
     Dosage: 300 MG, 1X/DAY
     Route: 048
     Dates: start: 20210521
  3. SPARSENTAN [Suspect]
     Active Substance: SPARSENTAN
     Indication: Nephropathy
     Dosage: 200 MG, 1X/DAY
     Route: 048
     Dates: start: 20210507, end: 20210520
  4. SPARSENTAN [Suspect]
     Active Substance: SPARSENTAN
     Dosage: 400 MG, 1X/DAY
     Route: 048
     Dates: start: 20210521
  5. TORSEMIDE [Concomitant]
     Active Substance: TORSEMIDE

REACTIONS (8)
  - Proteinuria [Not Recovered/Not Resolved]
  - Microalbuminuria [Not Recovered/Not Resolved]
  - Blood creatine increased [Not Recovered/Not Resolved]
  - Glomerular filtration rate decreased [Not Recovered/Not Resolved]
  - Protein urine present [Not Recovered/Not Resolved]
  - Urine protein/creatinine ratio increased [Not Recovered/Not Resolved]
  - Urine albumin/creatinine ratio increased [Not Recovered/Not Resolved]
  - Renal failure [Not Recovered/Not Resolved]

NARRATIVE: CASE EVENT DATE: 20210729
